FAERS Safety Report 18699836 (Version 1)
Quarter: 2021Q1

REPORT INFORMATION
  Report Type: Spontaneous
  Country: US (occurrence: US)
  Receive Date: 20210105
  Receipt Date: 20210105
  Transmission Date: 20210419
  Serious: No
  Sender: FDA-Public Use
  Company Number: US-TEVA-2018-US-873140

PATIENT
  Age: 75 Year
  Sex: Female

DRUGS (1)
  1. AUSTEDO [Suspect]
     Active Substance: DEUTETRABENAZINE
     Indication: TARDIVE DYSKINESIA
     Dosage: 24 MILLIGRAM DAILY; PT WAS TAKING WEEK 3 OF AUSTEDO TARDIVE DYSKINESIA TITRATION (12MG BID)
     Route: 065

REACTIONS (5)
  - Rash macular [Unknown]
  - Pruritus [Unknown]
  - Skin irritation [Unknown]
  - Glossitis [Unknown]
  - Nasal inflammation [Unknown]

NARRATIVE: CASE EVENT DATE: 20180214
